FAERS Safety Report 6149879-6 (Version None)
Quarter: 2009Q2

REPORT INFORMATION
  Report Type: 
  Country: None (occurrence: None)
  Receive Date: 20090409
  Receipt Date: 20090331
  Transmission Date: 20091009
  Serious: Yes (Other)
  Sender: FDA-Public Use
  Company Number: US-PFIZER INC-2008085178

PATIENT
  Sex: Female

DRUGS (19)
  1. LYRICA [Interacting]
     Indication: NEURALGIA
     Dosage: 75 MG, 1X/DAY
     Dates: start: 20070926, end: 20071014
  2. LYRICA [Interacting]
     Indication: CONVULSION
  3. LYRICA [Interacting]
     Indication: FIBROMYALGIA
  4. LITHIUM CARBONATE [Interacting]
     Dosage: 600 MG, UNK
     Dates: end: 20071014
  5. DOXEPIN HCL [Suspect]
     Indication: NERVE COMPRESSION
     Dosage: UNK
     Dates: start: 20060101, end: 20060101
  6. NAPROXEN AND NAPROXEN SODIUM [Suspect]
     Indication: PAIN
     Dosage: UNK
     Dates: start: 20050101
  7. NAPROXEN AND NAPROXEN SODIUM [Suspect]
     Indication: BURNING SENSATION
  8. TRAZODONE HCL [Suspect]
     Dosage: 100 MG, 1X/DAY
     Dates: start: 20080301, end: 20080101
  9. MOTRIN [Suspect]
     Indication: PELVIC PAIN
     Dosage: UNK
     Dates: start: 20030301
  10. FLEXERIL [Concomitant]
     Indication: MUSCLE DISORDER
  11. TRIAMTERENE [Concomitant]
  12. SYNTHROID [Concomitant]
     Indication: THYROID DISORDER
  13. NASAL PREPARATIONS [Concomitant]
     Indication: SINUS DISORDER
  14. ALL OTHER THERAPEUTIC PRODUCTS [Concomitant]
  15. LITHIUM CARBONATE [Suspect]
  16. DOXEPIN HCL [Suspect]
  17. NAPROXEN [Suspect]
  18. TRAZODONE HCL [Suspect]
  19. MOTRIN [Suspect]

REACTIONS (23)
  - ADVERSE REACTION [None]
  - AMNESIA [None]
  - APTYALISM [None]
  - CONFUSIONAL STATE [None]
  - CONVULSION [None]
  - DISTURBANCE IN ATTENTION [None]
  - DRUG INEFFECTIVE [None]
  - DRUG INTERACTION [None]
  - DRY MOUTH [None]
  - DYSPEPSIA [None]
  - FATIGUE [None]
  - HYPOAESTHESIA FACIAL [None]
  - ILL-DEFINED DISORDER [None]
  - LIP SWELLING [None]
  - MALAISE [None]
  - MENTAL IMPAIRMENT [None]
  - OEDEMA PERIPHERAL [None]
  - PERSONALITY CHANGE [None]
  - THROAT TIGHTNESS [None]
  - TONGUE DISORDER [None]
  - TREMOR [None]
  - VISION BLURRED [None]
  - WEIGHT INCREASED [None]
